FAERS Safety Report 21405014 (Version 1)
Quarter: 2022Q4

REPORT INFORMATION
  Report Type: Spontaneous
  Country: US (occurrence: US)
  Receive Date: 20221004
  Receipt Date: 20221004
  Transmission Date: 20230113
  Serious: No
  Sender: FDA-Public Use
  Company Number: US-JNJFOC-20220927809

PATIENT
  Sex: Female

DRUGS (1)
  1. TREMFYA [Suspect]
     Active Substance: GUSELKUMAB
     Indication: Product used for unknown indication
     Route: 065
     Dates: start: 20220626

REACTIONS (6)
  - Emotional disorder [Unknown]
  - Panic attack [Unknown]
  - Muscular weakness [Unknown]
  - Infectious mononucleosis [Unknown]
  - Crying [Unknown]
  - Asthenia [Unknown]
